FAERS Safety Report 11912244 (Version 1)
Quarter: 2016Q1

REPORT INFORMATION
  Report Type: Spontaneous
  Country: US (occurrence: US)
  Receive Date: 20160113
  Receipt Date: 20160113
  Transmission Date: 20160526
  Serious: No
  Sender: FDA-Public Use
  Company Number: US-PIERRE FABRE-1046439

PATIENT
  Age: 3 Month
  Sex: Female
  Weight: 12.5 kg

DRUGS (1)
  1. HEMANGEOL [Suspect]
     Active Substance: PROPRANOLOL HYDROCHLORIDE
     Indication: HAEMANGIOMA
     Route: 048
     Dates: start: 20151113

REACTIONS (4)
  - Hyperhidrosis [Recovered/Resolved]
  - Eye swelling [None]
  - Peripheral coldness [Not Recovered/Not Resolved]
  - Nasal congestion [Recovered/Resolved]

NARRATIVE: CASE EVENT DATE: 201511
